FAERS Safety Report 25194900 (Version 1)
Quarter: 2025Q2

REPORT INFORMATION
  Report Type: Spontaneous
  Country: IT (occurrence: IT)
  Receive Date: 20250415
  Receipt Date: 20250415
  Transmission Date: 20250716
  Serious: Yes (Hospitalization)
  Sender: STRIDES
  Company Number: IT-STRIDES ARCOLAB LIMITED-2025SP004589

PATIENT
  Age: 60 Year
  Sex: Female

DRUGS (1)
  1. PHENOBARBITAL [Suspect]
     Active Substance: PHENOBARBITAL
     Indication: Epilepsy
     Route: 065

REACTIONS (5)
  - Hypertonia [Recovering/Resolving]
  - Stupor [Recovering/Resolving]
  - Hepatic enzyme increased [Recovered/Resolved]
  - Accidental overdose [Recovering/Resolving]
  - Hypotension [Unknown]
